FAERS Safety Report 5284987-3 (Version None)
Quarter: 2007Q2

REPORT INFORMATION
  Report Type: 
  Country: None (occurrence: None)
  Receive Date: 20070403
  Receipt Date: 20070322
  Transmission Date: 20071010
  Serious: Yes (Hospitalization, Other)
  Sender: FDA-Public Use
  Company Number: US-PFIZER INC-2006081480

PATIENT
  Sex: Female

DRUGS (7)
  1. NEURONTIN [Suspect]
     Indication: DEPRESSION
     Route: 048
  2. NEURONTIN [Suspect]
     Indication: NERVE INJURY
  3. SOMA [Suspect]
  4. BUSPAR [Suspect]
  5. MOTRIN [Suspect]
  6. LORAZEPAM [Suspect]
  7. TRAMADOL HCL [Suspect]

REACTIONS (4)
  - DRUG INEFFECTIVE [None]
  - MULTIPLE DRUG OVERDOSE [None]
  - RESPIRATORY FAILURE [None]
  - SUICIDE ATTEMPT [None]
